FAERS Safety Report 9630920 (Version 1)
Quarter: 2013Q4

REPORT INFORMATION
  Report Type: Spontaneous
  Country: US (occurrence: None)
  Receive Date: 20131016
  Receipt Date: 20131016
  Transmission Date: 20140711
  Serious: Yes (Disabling)
  Sender: FDA-Public Use
  Company Number: None

PATIENT
  Age: 56 Year
  Sex: Male

DRUGS (1)
  1. LEVOQUIN [Suspect]
     Dosage: 1 PILL ONCE DAILY
     Route: 048
     Dates: start: 20130920, end: 20130926

REACTIONS (2)
  - Joint swelling [None]
  - Arthralgia [None]
